FAERS Safety Report 11440103 (Version 1)
Quarter: 2015Q3

REPORT INFORMATION
  Report Type: Spontaneous
  Country: US (occurrence: None)
  Receive Date: 20150831
  Receipt Date: 20150831
  Transmission Date: 20151125
  Serious: Yes (Hospitalization)
  Sender: FDA-Public Use
  Company Number: None

PATIENT
  Age: 39 Year
  Sex: Male
  Weight: 61 kg

DRUGS (1)
  1. MIDOSTAURIN [Suspect]
     Active Substance: MIDOSTAURIN
     Indication: LEUKAEMIA
     Dates: start: 20150626, end: 20150706

REACTIONS (4)
  - Blood bilirubin increased [None]
  - Amylase increased [None]
  - Dyspnoea [None]
  - Lipase increased [None]

NARRATIVE: CASE EVENT DATE: 20150827
